FAERS Safety Report 17686235 (Version 7)
Quarter: 2021Q3

REPORT INFORMATION
  Report Type: Report from Study
  Country: BR (occurrence: BR)
  Receive Date: 20200420
  Receipt Date: 20210915
  Transmission Date: 20211014
  Serious: Yes (Disabling)
  Sender: FDA-Public Use
  Company Number: NVSC2020BR104575

PATIENT
  Age: 10 Year
  Sex: Female

DRUGS (2)
  1. OMNITROPE [Suspect]
     Active Substance: SOMATROPIN
     Indication: PRODUCT USED FOR UNKNOWN INDICATION
     Dosage: UNK
     Route: 065
     Dates: start: 202004
  2. OMNITROPE [Suspect]
     Active Substance: SOMATROPIN
     Dosage: 1.3 MG, QD
     Route: 058
     Dates: start: 20200406

REACTIONS (6)
  - Injection site haemorrhage [Unknown]
  - Hypersensitivity [Unknown]
  - Pain [Not Recovered/Not Resolved]
  - Injection site pain [Recovered/Resolved]
  - Product prescribing error [Unknown]
  - Product preparation error [Unknown]

NARRATIVE: CASE EVENT DATE: 20200406
